FAERS Safety Report 5849113-8 (Version None)
Quarter: 2008Q3

REPORT INFORMATION
  Report Type: 
  Country: None (occurrence: None)
  Receive Date: 20080815
  Receipt Date: 20080804
  Transmission Date: 20090109
  Serious: Yes (Congenital Anomaly, Other)
  Sender: FDA-Public Use
  Company Number: ADE2008-0265

PATIENT
  Age: 25 Year
  Sex: Female

DRUGS (4)
  1. CITALOPRAM HYDROBROMIDE [Suspect]
     Indication: DEPRESSION
     Dosage: 40MG-DAILY
     Dates: start: 20070124, end: 20080423
  2. PROPRANOLOL [Suspect]
     Indication: ANXIETY
     Dosage: 10MG-TID
     Dates: start: 20070828
  3. DICLOFENAC SODIUM [Concomitant]
  4. FOLIC ACID [Concomitant]

REACTIONS (4)
  - ABORTION INDUCED [None]
  - ANENCEPHALY [None]
  - DRUG EXPOSURE DURING PREGNANCY [None]
  - MATERNAL DRUGS AFFECTING FOETUS [None]
